FAERS Safety Report 5006207-7 (Version None)
Quarter: 2006Q1

REPORT INFORMATION
  Report Type: 
  Country: None (occurrence: None)
  Receive Date: 20060327
  Receipt Date: 20060224
  Transmission Date: 20060701
  Serious: No
  Sender: FDA-Public Use
  Company Number: 222547

PATIENT
  Age: 65 Year
  Sex: Male

DRUGS (3)
  1. AVASTIN [Suspect]
     Indication: NON-SMALL CELL LUNG CANCER
     Dosage: 15 MG/KG
  2. CARBOPLATIN [Concomitant]
  3. PACLITAXEL [Concomitant]

REACTIONS (1)
  - NEUROPATHY [None]
